FAERS Safety Report 20245746 (Version 5)
Quarter: 2022Q2

REPORT INFORMATION
  Report Type: Report from Study
  Country: US (occurrence: US)
  Receive Date: 20211229
  Receipt Date: 20220610
  Transmission Date: 20220720
  Serious: Yes (Hospitalization)
  Sender: FDA-Public Use
  Company Number: US-NOVARTISTESTPH-NVSC2021US298783

PATIENT
  Sex: Female

DRUGS (1)
  1. ENTRESTO [Suspect]
     Active Substance: SACUBITRIL\VALSARTAN
     Indication: Product used for unknown indication
     Dosage: UNK, BID
     Route: 048
     Dates: start: 202111

REACTIONS (6)
  - Atrial fibrillation [Unknown]
  - Influenza [Unknown]
  - Disturbance in attention [Unknown]
  - Influenza like illness [Unknown]
  - Malaise [Unknown]
  - Stupor [Unknown]
